FAERS Safety Report 25311205 (Version 1)
Quarter: 2025Q2

REPORT INFORMATION
  Report Type: Report from Study
  Country: US (occurrence: US)
  Receive Date: 20250514
  Receipt Date: 20250514
  Transmission Date: 20250717
  Serious: Yes (Other)
  Sender: RECORDATI
  Company Number: US-RECORDATI RARE DISEASES-2025003091

PATIENT
  Age: 55 Year
  Sex: Female

DRUGS (1)
  1. PANHEMATIN [Suspect]
     Active Substance: HEMIN
     Indication: Porphyria acute
     Dates: start: 20250407

REACTIONS (1)
  - Thyroid mass [Unknown]

NARRATIVE: CASE EVENT DATE: 20250401
